FAERS Safety Report 14096217 (Version 5)
Quarter: 2018Q4

REPORT INFORMATION
  Report Type: Spontaneous
  Country: CA (occurrence: CA)
  Receive Date: 20171017
  Receipt Date: 20181205
  Transmission Date: 20190204
  Serious: Yes (Other)
  Sender: FDA-Public Use
  Company Number: CA-ORION CORPORATION ORION PHARMA-TREX2017-2708

PATIENT
  Age: 78 Year
  Sex: Female

DRUGS (3)
  1. METHOTREXATE (TRADE NAME UNKNOWN) [Suspect]
     Active Substance: METHOTREXATE
     Indication: RHEUMATOID ARTHRITIS
     Route: 048
  2. XELJANZ [Concomitant]
     Active Substance: TOFACITINIB CITRATE
     Route: 065
     Dates: start: 20171129
  3. FOLIC ACID. [Concomitant]
     Active Substance: FOLIC ACID
     Route: 065

REACTIONS (14)
  - Cough [Unknown]
  - Limb mass [Unknown]
  - Dyspnoea [Unknown]
  - Ageusia [Unknown]
  - Facial bones fracture [Unknown]
  - Fall [Recovered/Resolved]
  - Drug effect incomplete [Unknown]
  - Aphonia [Unknown]
  - Product dose omission [Unknown]
  - Hepatitis B virus test positive [Recovered/Resolved]
  - Asthenia [Recovered/Resolved]
  - Gait disturbance [Recovered/Resolved]
  - Pain in extremity [Not Recovered/Not Resolved]
  - Anosmia [Unknown]

NARRATIVE: CASE EVENT DATE: 2017
